FAERS Safety Report 9752326 (Version 1)
Quarter: 2013Q4

REPORT INFORMATION
  Report Type: Spontaneous
  Country: US (occurrence: None)
  Receive Date: 20131211
  Receipt Date: 20131211
  Transmission Date: 20140711
  Serious: Yes (Hospitalization)
  Sender: FDA-Public Use
  Company Number: None

PATIENT
  Age: 62 Year
  Sex: Male
  Weight: 100.9 kg

DRUGS (1)
  1. BORTEZOMIB [Suspect]
     Indication: NEOPLASM
     Route: 042
     Dates: start: 20131029, end: 20131112

REACTIONS (1)
  - Anaemia [None]
